FAERS Safety Report 7616734-1 (Version None)
Quarter: 2011Q3

REPORT INFORMATION
  Report Type: 
  Country: None (occurrence: None)
  Receive Date: 20110718
  Receipt Date: 20110708
  Transmission Date: 20111222
  Serious: Yes (Other)
  Sender: FDA-Public Use
  Company Number: US-BIOGENIDEC-2011BI023143

PATIENT
  Age: 28 Year
  Sex: Female

DRUGS (2)
  1. AMPYRA [Concomitant]
  2. TYSABRI [Suspect]
     Indication: MULTIPLE SCLEROSIS
     Route: 042
     Dates: start: 20080501

REACTIONS (1)
  - NO ADVERSE EVENT [None]
